FAERS Safety Report 12784775 (Version 2)
Quarter: 2019Q3

REPORT INFORMATION
  Report Type: Report from Study
  Country: TW (occurrence: TW)
  Receive Date: 20160927
  Receipt Date: 20190913
  Transmission Date: 20191004
  Serious: Yes (Hospitalization)
  Sender: FDA-Public Use
  Company Number: TW-ELI_LILLY_AND_COMPANY-BMS-2015-070086

PATIENT
  Sex: Male
  Weight: 64 kg

DRUGS (4)
  1. CETUXIMAB. [Suspect]
     Active Substance: CETUXIMAB
     Dosage: 400 (UNSPECIFIED UNIT), UNKNOWN
     Route: 042
     Dates: end: 20140613
  2. CETUXIMAB. [Suspect]
     Active Substance: CETUXIMAB
     Indication: COLORECTAL CANCER METASTATIC
     Dosage: 700 (UNITS NOT REPORTED), UNKNOWN
     Route: 042
     Dates: start: 20140403
  3. CAMPTO [Suspect]
     Active Substance: IRINOTECAN
     Indication: COLORECTAL CANCER METASTATIC
     Dosage: 237 (UNITS NOT REPORTED), UNKNOWN
     Route: 065
     Dates: start: 20140321, end: 20140606
  4. FLOUROURACIL [Suspect]
     Active Substance: FLUOROURACIL
     Indication: COLORECTAL CANCER METASTATIC
     Dosage: 3792 (UNITS NOT REPORTED), UNKNOWN
     Route: 065
     Dates: start: 20140321, end: 20140606

REACTIONS (1)
  - Neutropenia [Recovered/Resolved]

NARRATIVE: CASE EVENT DATE: 20150620
